FAERS Safety Report 8312982-6 (Version None)
Quarter: 2012Q2

REPORT INFORMATION
  Report Type: 
  Country: None (occurrence: None)
  Receive Date: 20120424
  Receipt Date: 20120409
  Transmission Date: 20120825
  Serious: Yes (Other)
  Sender: FDA-Public Use
  Company Number: 1255752

PATIENT
  Age: 40 Year
  Sex: Female
  Weight: 27.2158 kg

DRUGS (2)
  1. HERCEPTIN [Concomitant]
  2. DOCETAXEL [Suspect]
     Indication: BREAST CANCER
     Dosage: 21 DAY, INTRAVENOUS (NOT OTHERWISE SPECIFIED)
     Route: 042
     Dates: start: 20110809, end: 20110830

REACTIONS (2)
  - CHEST DISCOMFORT [None]
  - RESPIRATORY DISTRESS [None]
